FAERS Safety Report 21153641 (Version 1)
Quarter: 2022Q3

REPORT INFORMATION
  Report Type: Spontaneous
  Country: CA (occurrence: CA)
  Receive Date: 20220801
  Receipt Date: 20220801
  Transmission Date: 20221027
  Serious: Yes (Life-Threatening, Other)
  Sender: FDA-Public Use
  Company Number: CA-BAXTER-2022BAX015851

PATIENT
  Age: 79 Year
  Sex: Female

DRUGS (4)
  1. CYCLOPHOSPHAMIDE [Suspect]
     Active Substance: CYCLOPHOSPHAMIDE
     Indication: Plasma cell myeloma
     Dosage: DOSAGE FORM: NOT SPECIFIED.
     Route: 065
  2. DEXAMETHASONE [Suspect]
     Active Substance: DEXAMETHASONE
     Indication: Plasma cell myeloma
     Dosage: DOSAGE FORM: NOT SPECIFIED.
     Route: 065
  3. IXAZOMIB [Suspect]
     Active Substance: IXAZOMIB
     Indication: Plasma cell myeloma
     Dosage: 3.0 MG, CAPSULES.
     Route: 048
  4. IXAZOMIB [Suspect]
     Active Substance: IXAZOMIB
     Dosage: 4.0 MG.
     Route: 048

REACTIONS (6)
  - Off label use [Unknown]
  - Pain in extremity [Unknown]
  - Plasma cell myeloma [Unknown]
  - General physical health deterioration [Unknown]
  - Neutrophil count decreased [Unknown]
  - Platelet count decreased [Unknown]
